FAERS Safety Report 6191698-9 (Version None)
Quarter: 2009Q2

REPORT INFORMATION
  Report Type: 
  Country: None (occurrence: None)
  Receive Date: 20090515
  Receipt Date: 20071206
  Transmission Date: 20091009
  Serious: Yes (Hospitalization, Other)
  Sender: FDA-Public Use
  Company Number: US-ASTRAZENECA-2006UW23695

PATIENT
  Age: 18301 Day
  Sex: Female

DRUGS (21)
  1. SEROQUEL [Suspect]
     Route: 048
     Dates: start: 20000330
  2. GLUCOPHAGE [Concomitant]
     Route: 048
  3. PULMICORT-100 [Concomitant]
     Route: 055
  4. ZYPREXA [Concomitant]
     Dosage: 5 TO 20 MG
     Route: 048
  5. TOPAMAX [Concomitant]
     Route: 048
  6. DEPAKOTE [Concomitant]
     Dosage: 500 TO 1000 MG
     Route: 048
  7. BUSPAR [Concomitant]
     Route: 048
  8. PLENDIL [Concomitant]
     Route: 048
  9. LOPRESSOR [Concomitant]
     Route: 048
  10. HUMULIN R [Concomitant]
     Dosage: SLIDING SCALE
     Route: 058
  11. KLONOPIN [Concomitant]
     Route: 048
  12. SYNTHROID [Concomitant]
     Route: 048
  13. ANAFRANIL [Concomitant]
     Dosage: 25 TO 125 MG
     Route: 048
  14. COMBIVENT [Concomitant]
     Route: 055
  15. SPIRONOLACTONE [Concomitant]
     Route: 048
  16. LYRICA [Concomitant]
     Route: 048
  17. VERAPAMIL [Concomitant]
     Route: 048
  18. LASIX [Concomitant]
     Route: 048
  19. XANAX [Concomitant]
     Indication: BACK PAIN
     Route: 048
  20. PROVERA [Concomitant]
     Route: 048
  21. PAXIL [Concomitant]
     Dosage: 20 TO 40 MG
     Route: 048

REACTIONS (11)
  - BACK PAIN [None]
  - CARDIAC FAILURE CONGESTIVE [None]
  - DELUSION [None]
  - DIABETES MELLITUS [None]
  - DYSURIA [None]
  - KYPHOSIS [None]
  - LUNG NEOPLASM MALIGNANT [None]
  - PANCREATITIS [None]
  - RASH [None]
  - SUICIDAL IDEATION [None]
  - WEIGHT INCREASED [None]
